FAERS Safety Report 5896181-3 (Version None)
Quarter: 2008Q3

REPORT INFORMATION
  Report Type: 
  Country: None (occurrence: None)
  Receive Date: 20080924
  Receipt Date: 20080403
  Transmission Date: 20090109
  Serious: Yes (Other)
  Sender: FDA-Public Use
  Company Number: US-ASTRAZENECA-2007UW03743

PATIENT
  Age: 12579 Day
  Sex: Male

DRUGS (3)
  1. SEROQUEL [Suspect]
     Indication: DEPRESSION
     Route: 048
     Dates: start: 20040101, end: 20060117
  2. ZYPREXA [Concomitant]
     Route: 048
     Dates: start: 20030101, end: 20040101
  3. RISPERDAL [Concomitant]
     Route: 048
     Dates: start: 20030101, end: 20040101

REACTIONS (1)
  - PANCREATITIS ACUTE [None]
